FAERS Safety Report 10646724 (Version 2)
Quarter: 2014Q4

REPORT INFORMATION
  Report Type: Spontaneous
  Country: CH (occurrence: CH)
  Receive Date: 20141211
  Receipt Date: 20141211
  Transmission Date: 20150529
  Serious: Yes (Other)
  Sender: FDA-Public Use
  Company Number: CH-PFIZER INC-2014313703

PATIENT
  Age: 67 Year
  Sex: Female

DRUGS (1)
  1. ALDACTONE [Suspect]
     Active Substance: SPIRONOLACTONE
     Indication: ADRENAL INSUFFICIENCY
     Dosage: UNK, 1X/DAY
     Route: 048

REACTIONS (2)
  - Endometrial hypertrophy [Unknown]
  - Product use issue [Unknown]
